FAERS Safety Report 17805497 (Version 2)
Quarter: 2020Q2

REPORT INFORMATION
  Report Type: Spontaneous
  Country: JP (occurrence: JP)
  Receive Date: 20200519
  Receipt Date: 20200522
  Transmission Date: 20200714
  Serious: Yes (Other)
  Sender: FDA-Public Use
  Company Number: JP-SEATTLE GENETICS-2020SGN02189

PATIENT
  Age: 48 Year
  Sex: Male

DRUGS (1)
  1. ADCETRIS [Suspect]
     Active Substance: BRENTUXIMAB VEDOTIN
     Indication: HODGKIN^S DISEASE
     Dosage: 1.2 MILLIGRAM
     Route: 042

REACTIONS (4)
  - Hodgkin^s disease [Unknown]
  - Condition aggravated [Unknown]
  - Metastases to liver [Unknown]
  - Colon cancer [Unknown]
